FAERS Safety Report 10518111 (Version 2)
Quarter: 2014Q4

REPORT INFORMATION
  Report Type: Spontaneous
  Country: US (occurrence: US)
  Receive Date: 20141015
  Receipt Date: 20141125
  Transmission Date: 20150528
  Serious: No
  Sender: FDA-Public Use
  Company Number: US-BIOGENIDEC-2014BI104635

PATIENT
  Age: 57 Year
  Sex: Female

DRUGS (1)
  1. TECFIDERA [Suspect]
     Active Substance: DIMETHYL FUMARATE
     Indication: MULTIPLE SCLEROSIS
     Route: 048
     Dates: start: 20140918

REACTIONS (6)
  - Pruritus [Not Recovered/Not Resolved]
  - Pain [Not Recovered/Not Resolved]
  - Rash generalised [Not Recovered/Not Resolved]
  - Hypersensitivity [Unknown]
  - Oropharyngeal pain [Not Recovered/Not Resolved]
  - Generalised erythema [Not Recovered/Not Resolved]

NARRATIVE: CASE EVENT DATE: 20141002
